FAERS Safety Report 4348595-0 (Version None)
Quarter: 2004Q2

REPORT INFORMATION
  Report Type: 
  Country: None (occurrence: None)
  Receive Date: 20040423
  Receipt Date: 20040413
  Transmission Date: 20050107
  Serious: Yes (Life-Threatening, Hospitalization)
  Sender: FDA-Public Use
  Company Number: US-JNJFOC-20040403033

PATIENT
  Sex: Male

DRUGS (1)
  1. REMICADE (INLFIXIMAB, RECOMBINANT) LYOPHILIZED POWDER [Suspect]
     Dosage: INTRAVENOUS
     Route: 042

REACTIONS (4)
  - CYTOMEGALOVIRUS INFECTION [None]
  - MALAISE [None]
  - RESPIRATORY DISTRESS [None]
  - SEPSIS [None]
